FAERS Safety Report 6211299-3 (Version None)
Quarter: 2009Q2

REPORT INFORMATION
  Report Type: 
  Country: None (occurrence: None)
  Receive Date: 20090602
  Receipt Date: 20090529
  Transmission Date: 20091009
  Serious: Yes (Life-Threatening, Hospitalization)
  Sender: FDA-Public Use
  Company Number: SE-JNJFOC-20090506938

PATIENT
  Age: 18 Year
  Sex: Female

DRUGS (2)
  1. CILEST [Suspect]
     Indication: CONTRACEPTION
     Route: 048
  2. TRASYLOL [Concomitant]
     Indication: ACNE
     Route: 065

REACTIONS (5)
  - CEREBRAL VENOUS THROMBOSIS [None]
  - DIPLOPIA [None]
  - MIGRAINE [None]
  - PAPILLOEDEMA [None]
  - VITH NERVE PARALYSIS [None]
